FAERS Safety Report 24842762 (Version 10)
Quarter: 2025Q3

REPORT INFORMATION
  Report Type: Spontaneous
  Country: US (occurrence: US)
  Receive Date: 20250115
  Receipt Date: 20250712
  Transmission Date: 20251020
  Serious: Yes (Hospitalization)
  Sender: SANOFI AVENTIS
  Company Number: US-SA-2025SA004751

PATIENT
  Age: 13 Year
  Sex: Male
  Weight: 65.77 kg

DRUGS (7)
  1. ELOCTATE [Suspect]
     Active Substance: EFMOROCTOCOG ALFA
     Indication: Haemorrhage
     Dosage: 4056 IU (+/-10%), BIW (EVERY TUESDAY AND FRIDAY)
     Route: 042
  2. ELOCTATE [Suspect]
     Active Substance: EFMOROCTOCOG ALFA
     Indication: Factor VIII deficiency
     Dosage: 750 U, QD
     Route: 042
  3. ELOCTATE [Suspect]
     Active Substance: EFMOROCTOCOG ALFA
     Indication: Haemophilia
     Dosage: 3000 U, QD
     Route: 042
  4. ELOCTATE [Suspect]
     Active Substance: EFMOROCTOCOG ALFA
     Route: 042
  5. ELOCTATE [Suspect]
     Active Substance: EFMOROCTOCOG ALFA
     Route: 042
     Dates: start: 20250103
  6. ELOCTATE [Suspect]
     Active Substance: EFMOROCTOCOG ALFA
     Dosage: 4065 U (3659-4471), BIW (EVERY TUESDAY, FRIDAY, AND AS NEEDED)
     Route: 042
     Dates: start: 202503
  7. SODIUM CHLORIDE [Concomitant]
     Active Substance: SODIUM CHLORIDE

REACTIONS (12)
  - Haemorrhage [Unknown]
  - Fall [Unknown]
  - Traumatic haemorrhage [Unknown]
  - Gait disturbance [Unknown]
  - Joint injury [Unknown]
  - Pain [Unknown]
  - Joint instability [Unknown]
  - Haemorrhage [Unknown]
  - Weight increased [Unknown]
  - Dizziness [Recovered/Resolved]
  - Arthralgia [Unknown]
  - Joint swelling [Unknown]

NARRATIVE: CASE EVENT DATE: 20250103
